FAERS Safety Report 5277602-6 (Version None)
Quarter: 2007Q1

REPORT INFORMATION
  Report Type: 
  Country: None (occurrence: None)
  Receive Date: 20070327
  Receipt Date: 20070315
  Transmission Date: 20070707
  Serious: Yes (Death, Life-Threatening, Congenital Anomaly)
  Sender: FDA-Public Use
  Company Number: JP-SANOFI-SYNTHELABO-A01200406328

PATIENT
  Sex: Female
  Weight: 1.758 kg

DRUGS (15)
  1. HABEKACIN [Concomitant]
     Indication: NEONATAL INFECTION
     Route: 042
     Dates: start: 20020727, end: 20020727
  2. FLUMARIN [Concomitant]
     Indication: NEONATAL INFECTION
     Route: 042
     Dates: start: 20020727, end: 20020727
  3. MIRACLID [Concomitant]
     Indication: DISSEMINATED INTRAVASCULAR COAGULATION
     Dosage: 10000 UNIT
     Route: 042
     Dates: start: 20020726, end: 20020727
  4. MIRACLID [Concomitant]
     Indication: CARDIAC FAILURE
     Dosage: 10000 UNIT
     Route: 042
     Dates: start: 20020726, end: 20020727
  5. ANTHROBIN P [Concomitant]
     Indication: DISSEMINATED INTRAVASCULAR COAGULATION
     Dosage: 100 UNIT
     Route: 042
     Dates: start: 20020726, end: 20020727
  6. GLOVENIN-I [Concomitant]
     Indication: NEONATAL INFECTION
     Route: 041
     Dates: start: 20020726, end: 20020726
  7. DORMICUM [Concomitant]
     Indication: SMALL FOR DATES BABY
     Route: 041
     Dates: start: 20020726, end: 20020727
  8. WAKOBITAL [Concomitant]
     Indication: SMALL FOR DATES BABY
     Route: 054
     Dates: start: 20020725, end: 20020726
  9. MEYLON [Concomitant]
     Indication: LATE METABOLIC ACIDOSIS OF NEWBORN
     Route: 042
     Dates: start: 20020725, end: 20020725
  10. GENTACIN [Concomitant]
     Indication: NEONATAL INFECTION
     Dosage: 3-6 MG/DAY
     Route: 042
     Dates: start: 20020725, end: 20020727
  11. VICCILLIN [Concomitant]
     Indication: NEONATAL INFECTION
     Dosage: 120-180 MG/DAY
     Route: 042
     Dates: start: 20020725, end: 20020727
  12. DOBUTREX [Concomitant]
     Indication: CARDIAC FAILURE
     Dosage: 5.5-10 MCG/KG/MIN
     Route: 041
     Dates: start: 20020725, end: 20020727
  13. INOVAN [Concomitant]
     Indication: CARDIAC FAILURE
     Dosage: 5.5-10 MCG/KG/MIN
     Route: 041
     Dates: start: 20020725, end: 20020727
  14. MILRILA [Suspect]
     Indication: CARDIAC FAILURE
     Dosage: 0.5 MCG/KG/MIN
     Route: 041
     Dates: start: 20020725, end: 20020725
  15. MILRILA [Suspect]
     Dosage: 0.6 MCG/KG/MIN
     Route: 041
     Dates: start: 20020726, end: 20020726

REACTIONS (4)
  - PATENT DUCTUS ARTERIOSUS [None]
  - PULMONARY HAEMORRHAGE [None]
  - PULMONARY OEDEMA [None]
  - THROMBOCYTOPENIA [None]
